FAERS Safety Report 5139018-2 (Version None)
Quarter: 2006Q4

REPORT INFORMATION
  Report Type: 
  Country: None (occurrence: None)
  Receive Date: 20061024
  Receipt Date: 20061012
  Transmission Date: 20070319
  Serious: Yes (Hospitalization)
  Sender: FDA-Public Use
  Company Number: 2006BI011230

PATIENT
  Age: 64 Year
  Sex: Male

DRUGS (3)
  1. AVONEX [Suspect]
     Indication: MULTIPLE SCLEROSIS
     Dosage: 30 MG QW IM
     Route: 030
     Dates: start: 20020603
  2. AVONEX [Suspect]
     Indication: MULTIPLE SCLEROSIS
     Dosage: 30 UG QW IM
     Route: 030
  3. NEUROPATHY MEDICATION (NOS) [Concomitant]

REACTIONS (3)
  - DISORIENTATION [None]
  - DRUG HYPERSENSITIVITY [None]
  - URINARY TRACT INFECTION [None]
